FAERS Safety Report 4665432-5 (Version None)
Quarter: 2005Q2

REPORT INFORMATION
  Report Type: 
  Country: None (occurrence: None)
  Receive Date: 20050517
  Receipt Date: 20050504
  Transmission Date: 20051028
  Serious: Yes (Hospitalization)
  Sender: FDA-Public Use
  Company Number: USA050597292

PATIENT
  Age: 16 Year
  Sex: Male

DRUGS (3)
  1. HUMATROPE [Suspect]
     Indication: SMALL FOR DATES BABY
     Dosage: 2.8 MG/6 WEEK
     Dates: start: 20031031
  2. PRILOSEC (OMEPRAZOLE RATIOPHARM) [Concomitant]
  3. FLOVENT [Concomitant]

REACTIONS (2)
  - ANAEMIA [None]
  - FATIGUE [None]
